FAERS Safety Report 6951362-2 (Version None)
Quarter: 2010Q3

REPORT INFORMATION
  Report Type: 
  Country: None (occurrence: None)
  Receive Date: 20100828
  Receipt Date: 20100319
  Transmission Date: 20110219
  Serious: No
  Sender: FDA-Public Use
  Company Number: US-ABBOTT-10P-163-0634491-00

PATIENT
  Sex: Male
  Weight: 74.002 kg

DRUGS (9)
  1. NIASPAN [Suspect]
     Indication: VASCULAR GRAFT
     Route: 048
     Dates: start: 20070901
  2. NIASPAN [Suspect]
     Route: 048
  3. NIASPAN [Suspect]
     Route: 048
  4. NIASPAN [Suspect]
     Route: 048
  5. FISH OIL [Concomitant]
     Indication: MEDICAL DIET
  6. COQ10 [Concomitant]
     Indication: SUPPLEMENTATION THERAPY
  7. ECHINACEA [Concomitant]
     Indication: PHYTOTHERAPY
  8. ASPIRIN [Concomitant]
     Indication: PROPHYLAXIS
  9. SIMVASTATIN [Concomitant]
     Indication: PRODUCT USED FOR UNKNOWN INDICATION
     Route: 048

REACTIONS (2)
  - FATIGUE [None]
  - HEPATIC ENZYME INCREASED [None]
